FAERS Safety Report 7352743-8 (Version None)
Quarter: 2011Q1

REPORT INFORMATION
  Report Type: 
  Country: None (occurrence: None)
  Receive Date: 20110302
  Receipt Date: 20100223
  Transmission Date: 20110831
  Serious: Yes (Other)
  Sender: FDA-Public Use
  Company Number: 304772

PATIENT
  Sex: Male
  Weight: 62.6 kg

DRUGS (2)
  1. NOVOLIN 70/30 [Suspect]
     Indication: TYPE 1 DIABETES MELLITUS
     Dosage: 11 UNITS MORNING, 7 UNITS LUNCH, 10 UNITS EVENING, SUBCUTANEOUS
     Route: 058
  2. LANTUS [Concomitant]

REACTIONS (4)
  - UNRESPONSIVE TO STIMULI [None]
  - BLOOD GLUCOSE DECREASED [None]
  - BLOOD GLUCOSE INCREASED [None]
  - WEIGHT DECREASED [None]
